FAERS Safety Report 14705143 (Version 2)
Quarter: 2018Q3

REPORT INFORMATION
  Report Type: Spontaneous
  Country: FR (occurrence: FR)
  Receive Date: 20180402
  Receipt Date: 20180711
  Transmission Date: 20181010
  Serious: Yes (Hospitalization, Other)
  Sender: FDA-Public Use
  Company Number: FR-SA-2018SA056288

PATIENT
  Age: 63 Year
  Sex: Female
  Weight: 71 kg

DRUGS (20)
  1. AFLIBERCEPT [Suspect]
     Active Substance: AFLIBERCEPT
     Indication: COLORECTAL CANCER METASTATIC
     Dosage: UNK UNK,QCY
     Route: 041
     Dates: start: 20140918, end: 20140918
  2. 5 FU [Suspect]
     Active Substance: FLUOROURACIL
     Dosage: 4400 MG,QCY
     Route: 040
     Dates: start: 20141113, end: 20141113
  3. FOLINIC ACID [Suspect]
     Active Substance: LEUCOVORIN
     Indication: COLORECTAL CANCER METASTATIC
     Dosage: UNK UNK,QCY
     Route: 041
     Dates: start: 20140918, end: 20140918
  4. FOLINIC ACID [Suspect]
     Active Substance: LEUCOVORIN
     Dosage: 600 MG,QCY
     Route: 041
     Dates: start: 20141113, end: 20141113
  5. LOPERAMIDE [Concomitant]
     Active Substance: LOPERAMIDE
  6. XANAX [Concomitant]
     Active Substance: ALPRAZOLAM
  7. DIFFU K [Concomitant]
     Active Substance: POTASSIUM CHLORIDE
  8. SOLUPRED [METHYLPREDNISOLONE] [Concomitant]
  9. IRINOTECAN [Suspect]
     Active Substance: IRINOTECAN
     Indication: COLORECTAL CANCER METASTATIC
     Dosage: 330 MG,QCY
     Route: 041
     Dates: start: 20140918, end: 20140918
  10. ALPRAZOLAM. [Concomitant]
     Active Substance: ALPRAZOLAM
  11. PRIMPERAN [Concomitant]
     Active Substance: METOCLOPRAMIDE HYDROCHLORIDE
  12. AFLIBERCEPT [Suspect]
     Active Substance: AFLIBERCEPT
     Dosage: 300 MG,QCY
     Route: 041
     Dates: start: 20141113, end: 20141113
  13. APREPITANT. [Concomitant]
     Active Substance: APREPITANT
  14. HYDROXYZINE [Concomitant]
     Active Substance: HYDROXYZINE HYDROCHLORIDE
  15. ESOMEPRAZOLE MAGNESIUM. [Concomitant]
     Active Substance: ESOMEPRAZOLE MAGNESIUM
  16. G?CSF [Concomitant]
     Active Substance: GRANULOCYTE COLONY-STIMULATING FACTOR NOS
  17. FOLINIC ACID [Concomitant]
     Active Substance: LEUCOVORIN
  18. CALCIUM FOLINATE [Suspect]
     Active Substance: LEUCOVORIN CALCIUM
     Indication: COLORECTAL CANCER METASTATIC
     Dosage: 600 MG, UNK
     Route: 041
  19. 5 FU [Suspect]
     Active Substance: FLUOROURACIL
     Indication: COLORECTAL CANCER METASTATIC
     Dosage: UNK UNK,QCY
     Route: 040
     Dates: start: 20140918, end: 20140918
  20. IRINOTECAN [Suspect]
     Active Substance: IRINOTECAN
     Indication: OFF LABEL USE
     Dosage: 320 MG,QCY
     Route: 041
     Dates: start: 20141113, end: 20141113

REACTIONS (4)
  - Pyrexia [Unknown]
  - Pulmonary embolism [Not Recovered/Not Resolved]
  - Gastrooesophageal reflux disease [Recovered/Resolved]
  - Off label use [Unknown]

NARRATIVE: CASE EVENT DATE: 201411
